FAERS Safety Report 17808153 (Version 1)
Quarter: 2020Q2

REPORT INFORMATION
  Report Type: Spontaneous
  Country: US (occurrence: US)
  Receive Date: 20200520
  Receipt Date: 20200520
  Transmission Date: 20200714
  Serious: No
  Sender: FDA-Public Use
  Company Number: US-CIPLA LTD.-2020US00755

PATIENT

DRUGS (1)
  1. TOPIRAMATE. [Suspect]
     Active Substance: TOPIRAMATE
     Indication: MIGRAINE
     Dosage: 25 MILLIGRAM, BID
     Route: 048
     Dates: start: 2012

REACTIONS (2)
  - Drug ineffective [Unknown]
  - Product substitution issue [Unknown]
